FAERS Safety Report 9026474 (Version 1)
Quarter: 2012Q4

REPORT INFORMATION
  Report Type: Spontaneous
  Country: CO (occurrence: None)
  Receive Date: 20121211
  Receipt Date: 20121211
  Transmission Date: 20130627
  Serious: Yes (Other)
  Sender: FDA-Public Use
  Company Number: DSU-2012-09589

PATIENT
  Age: 37 Year
  Sex: Female

DRUGS (1)
  1. OLMETEC (OLMESARTAN MEDOXOMIL) [Suspect]
     Indication: DRUG USE FOR UNKNOWN INDICATION
     Dosage: Unknown, Per oral
Unknown  -  Ongoing
     Route: 048

REACTIONS (1)
  - Hysterectomy [None]
